FAERS Safety Report 5794256-0 (Version None)
Quarter: 2008Q2

REPORT INFORMATION
  Report Type: 
  Country: None (occurrence: None)
  Receive Date: 20080627
  Receipt Date: 20080616
  Transmission Date: 20081010
  Serious: Yes (Other)
  Sender: FDA-Public Use
  Company Number: US-PFIZER INC-2008051843

PATIENT
  Sex: Female
  Weight: 76.7 kg

DRUGS (4)
  1. LYRICA [Suspect]
     Indication: BURNING SENSATION
  2. LYRICA [Suspect]
     Indication: FIBROMYALGIA
  3. METHOCARBAMOL [Suspect]
  4. AMITRIPTYLINE HCL [Concomitant]

REACTIONS (3)
  - DRUG INEFFECTIVE [None]
  - DRY MOUTH [None]
  - HYPERTENSION [None]
